FAERS Safety Report 24574420 (Version 2)
Quarter: 2025Q3

REPORT INFORMATION
  Report Type: Report from Study
  Country: US (occurrence: US)
  Receive Date: 20241104
  Receipt Date: 20250809
  Transmission Date: 20251020
  Serious: Yes (Hospitalization, Other)
  Sender: ALEXION PHARMACEUTICALS
  Company Number: US-ASTRAZENECA-202410USA015620US

PATIENT
  Sex: Female

DRUGS (16)
  1. BENRALIZUMAB [Suspect]
     Active Substance: BENRALIZUMAB
     Indication: Asthma
     Dosage: 30 MILLIGRAM, Q8W
     Dates: start: 202306
  2. BENRALIZUMAB [Suspect]
     Active Substance: BENRALIZUMAB
  3. SEROQUEL [Concomitant]
     Active Substance: QUETIAPINE FUMARATE
  4. ALBUTEROL [Concomitant]
     Active Substance: ALBUTEROL
  5. ASPIRIN [Concomitant]
     Active Substance: ASPIRIN
  6. DILTIAZEM [Concomitant]
     Active Substance: DILTIAZEM
  7. JANUVIA [Concomitant]
     Active Substance: SITAGLIPTIN PHOSPHATE
  8. LEVOTHYROXINE [Concomitant]
     Active Substance: LEVOTHYROXINE
  9. LUTEIN [Concomitant]
     Active Substance: LUTEIN
  10. METFORMIN [Concomitant]
     Active Substance: METFORMIN HYDROCHLORIDE
  11. MULTAQ [Concomitant]
     Active Substance: DRONEDARONE
  12. MYRBETRIQ [Concomitant]
     Active Substance: MIRABEGRON
  13. SENNA [Concomitant]
     Active Substance: SENNOSIDES
  14. SYNTHROID [Concomitant]
     Active Substance: LEVOTHYROXINE SODIUM
  15. TRINTELLIX [Concomitant]
     Active Substance: VORTIOXETINE HYDROBROMIDE
  16. VITAMIN D [Concomitant]
     Active Substance: VITAMIN D NOS

REACTIONS (3)
  - Nephrolithiasis [Recovered/Resolved]
  - Illness [Recovered/Resolved]
  - Blood culture positive [Recovered/Resolved]
